FAERS Safety Report 4521574-6 (Version None)
Quarter: 2004Q4

REPORT INFORMATION
  Report Type: 
  Country: None (occurrence: None)
  Receive Date: 20041206
  Receipt Date: 20041122
  Transmission Date: 20050328
  Serious: No
  Sender: FDA-Public Use
  Company Number: 2004UW24004

PATIENT
  Sex: Male

DRUGS (1)
  1. ELAVIL [Suspect]
     Indication: URINARY TRACT INFECTION
     Dosage: 25 MG QD PO
     Route: 048
     Dates: start: 20020101

REACTIONS (14)
  - ASTHENIA [None]
  - DELUSION [None]
  - DISTURBANCE IN ATTENTION [None]
  - EATING DISORDER [None]
  - FEELING ABNORMAL [None]
  - HEPATIC CYST [None]
  - HEPATIC LESION [None]
  - IMPRISONMENT [None]
  - INSOMNIA [None]
  - NIGHTMARE [None]
  - PAIN [None]
  - PHYSICAL ASSAULT [None]
  - SUICIDE ATTEMPT [None]
  - TREMOR [None]
